FAERS Safety Report 7259977-1 (Version None)
Quarter: 2011Q1

REPORT INFORMATION
  Report Type: 
  Country: None (occurrence: None)
  Receive Date: 20110130
  Receipt Date: 20101007
  Transmission Date: 20110831
  Serious: No
  Sender: FDA-Public Use
  Company Number: US-ABBOTT-10P-163-0676533-00

PATIENT
  Sex: Female
  Weight: 63.56 kg

DRUGS (5)
  1. BONIVA [Concomitant]
     Indication: OSTEOPENIA
     Dosage: UNKNOWN STRENGTH
     Route: 048
  2. HUMIRA [Suspect]
     Indication: PSORIATIC ARTHROPATHY
     Route: 058
     Dates: start: 20070101, end: 20100601
  3. HUMIRA [Suspect]
     Route: 058
     Dates: start: 20100701
  4. ALLEGRA [Concomitant]
     Indication: SEASONAL ALLERGY
     Route: 048
  5. DAYPRO [Concomitant]
     Indication: PRODUCT USED FOR UNKNOWN INDICATION
     Dosage: USUALLY TAKES IN WINTER
     Route: 048

REACTIONS (4)
  - INJECTION SITE HAEMATOMA [None]
  - INJECTION SITE PAIN [None]
  - LACERATION [None]
  - NAIL INJURY [None]
